FAERS Safety Report 7495194-8 (Version None)
Quarter: 2011Q2

REPORT INFORMATION
  Report Type: 
  Country: None (occurrence: None)
  Receive Date: 20110520
  Receipt Date: 20110512
  Transmission Date: 20111010
  Serious: Yes (Other)
  Sender: FDA-Public Use
  Company Number: US-RB-027552-11

PATIENT
  Age: 21 Year
  Sex: Male

DRUGS (1)
  1. SUBOXONE [Suspect]
     Indication: PRODUCT USED FOR UNKNOWN INDICATION
     Route: 065

REACTIONS (4)
  - ENERGY INCREASED [None]
  - SUBSTANCE ABUSE [None]
  - DRUG WITHDRAWAL SYNDROME [None]
  - THERAPY NAIVE [None]
